FAERS Safety Report 11691375 (Version 1)
Quarter: 2015Q4

REPORT INFORMATION
  Report Type: Spontaneous
  Country: GR (occurrence: GR)
  Receive Date: 20151102
  Receipt Date: 20151102
  Transmission Date: 20160304
  Serious: Yes (Other)
  Sender: FDA-Public Use
  Company Number: GR-JNJFOC-20151020369

PATIENT
  Sex: Female

DRUGS (1)
  1. STELARA [Suspect]
     Active Substance: USTEKINUMAB
     Indication: PRODUCT USED FOR UNKNOWN INDICATION
     Route: 058
     Dates: start: 2012

REACTIONS (2)
  - Cervical dysplasia [Unknown]
  - Anogenital warts [Unknown]
